FAERS Safety Report 22789942 (Version 2)
Quarter: 2023Q4

REPORT INFORMATION
  Report Type: Spontaneous
  Country: US (occurrence: US)
  Receive Date: 20230804
  Receipt Date: 20231211
  Transmission Date: 20240110
  Serious: No
  Sender: FDA-Public Use
  Company Number: US-PFIZER INC-PV202300134865

PATIENT
  Age: 64 Year
  Sex: Male
  Weight: 83.9 kg

DRUGS (6)
  1. LORBRENA [Suspect]
     Active Substance: LORLATINIB
     Indication: Lung neoplasm malignant
     Dosage: 100 MG, DAILY (MAY TAKE WITH OR WITHOUT FOOD. DO NOT CRUSH OR CHEW TABLETS)
     Route: 048
     Dates: start: 20220730
  2. LORBRENA [Suspect]
     Active Substance: LORLATINIB
     Indication: Non-small cell lung cancer stage IV
  3. LORBRENA [Suspect]
     Active Substance: LORLATINIB
     Indication: Anaplastic lymphoma kinase gene mutation
  4. LORBRENA [Suspect]
     Active Substance: LORLATINIB
     Indication: Lung adenocarcinoma
  5. LORBRENA [Suspect]
     Active Substance: LORLATINIB
     Indication: Lung cancer metastatic
  6. ZOMETA [Concomitant]
     Active Substance: ZOLEDRONIC ACID
     Indication: Metastases to bone
     Dosage: UNK

REACTIONS (2)
  - Hyperlipidaemia [Unknown]
  - Pain [Recovering/Resolving]
